FAERS Safety Report 14212808 (Version 1)
Quarter: 2017Q4

REPORT INFORMATION
  Report Type: Spontaneous
  Country: US (occurrence: RU)
  Receive Date: 20171122
  Receipt Date: 20171122
  Transmission Date: 20180321
  Serious: Yes (Other)
  Sender: FDA-Public Use
  Company Number: US-SUNOVION-2017SUN005037

PATIENT

DRUGS (2)
  1. GLYCOPYRROLATE. [Suspect]
     Active Substance: GLYCOPYRROLATE
     Indication: ASPHYXIA
  2. GLYCOPYRROLATE. [Suspect]
     Active Substance: GLYCOPYRROLATE
     Indication: CHRONIC OBSTRUCTIVE PULMONARY DISEASE
     Dosage: UNK
     Route: 065
     Dates: start: 201601, end: 201602

REACTIONS (7)
  - Asphyxia [Unknown]
  - Headache [Unknown]
  - Product use in unapproved indication [Unknown]
  - Panic attack [Unknown]
  - Neurosis [Unknown]
  - Hypoxia [Unknown]
  - Poisoning [Unknown]

NARRATIVE: CASE EVENT DATE: 201602
